FAERS Safety Report 15762850 (Version 2)
Quarter: 2019Q1

REPORT INFORMATION
  Report Type: Report from Study
  Country: FI (occurrence: FI)
  Receive Date: 20181226
  Receipt Date: 20190103
  Transmission Date: 20190417
  Serious: Yes (Other)
  Sender: FDA-Public Use
  Company Number: FI-PFIZER INC-2018523651

PATIENT

DRUGS (5)
  1. CEFUROXIME. [Suspect]
     Active Substance: CEFUROXIME
     Indication: EPILEPSY
     Dosage: UNK
  2. SODIUM THIOPENTAL MITSUBISHI [Suspect]
     Active Substance: THIOPENTAL SODIUM
     Indication: EPILEPSY
     Dosage: UNK
  3. PROPOFOL. [Suspect]
     Active Substance: PROPOFOL
     Indication: EPILEPSY
     Dosage: UNK
  4. MIDAZOLAM [Suspect]
     Active Substance: MIDAZOLAM HYDROCHLORIDE
     Indication: EPILEPSY
     Dosage: UNK
  5. SODIUM VALPROATE [Suspect]
     Active Substance: VALPROATE SODIUM
     Indication: EPILEPSY
     Dosage: UNK

REACTIONS (4)
  - Aspartate aminotransferase increased [Recovered/Resolved]
  - Status epilepticus [Unknown]
  - Sepsis [Unknown]
  - Alanine aminotransferase increased [Recovered/Resolved]
